FAERS Safety Report 12343535 (Version 1)
Quarter: 2016Q2

REPORT INFORMATION
  Report Type: Spontaneous
  Country: US (occurrence: US)
  Receive Date: 20160506
  Receipt Date: 20160506
  Transmission Date: 20160815
  Serious: Yes (Hospitalization, Other)
  Sender: FDA-Public Use
  Company Number: US-GLAXOSMITHKLINE-US2016GSK063529

PATIENT
  Sex: Male

DRUGS (4)
  1. ADVAIR HFA [Suspect]
     Active Substance: FLUTICASONE PROPIONATE\SALMETEROL XINAFOATE
     Indication: OBSTRUCTIVE AIRWAYS DISORDER
     Dosage: UNK, 1D
  2. GABAPENTIN. [Suspect]
     Active Substance: GABAPENTIN
     Indication: PRODUCT USED FOR UNKNOWN INDICATION
  3. ADVAIR HFA [Suspect]
     Active Substance: FLUTICASONE PROPIONATE\SALMETEROL XINAFOATE
     Indication: RESTRICTIVE PULMONARY DISEASE
     Dosage: 500/50 MCG BID
  4. TOPAMAX [Suspect]
     Active Substance: TOPIRAMATE
     Indication: PRODUCT USED FOR UNKNOWN INDICATION

REACTIONS (19)
  - Streptococcal infection [Unknown]
  - Underdose [Unknown]
  - Condition aggravated [Unknown]
  - Dysstasia [Unknown]
  - Speech disorder [Unknown]
  - Staphylococcal infection [Unknown]
  - Cerebrovascular accident [Unknown]
  - Pneumonia [Unknown]
  - Thrombosis [Unknown]
  - Lung disorder [Unknown]
  - Hospitalisation [Unknown]
  - Inappropriate schedule of drug administration [Unknown]
  - Empyema [Unknown]
  - Dyspnoea [Unknown]
  - Atrial fibrillation [Recovered/Resolved]
  - Transient ischaemic attack [Unknown]
  - Embolism [Unknown]
  - Autoimmune disorder [Unknown]
  - Ill-defined disorder [Unknown]
